FAERS Safety Report 11705553 (Version 1)
Quarter: 2015Q4

REPORT INFORMATION
  Report Type: Spontaneous
  Country: US (occurrence: US)
  Receive Date: 20151106
  Receipt Date: 20151106
  Transmission Date: 20160304
  Serious: Yes (Other)
  Sender: FDA-Public Use
  Company Number: US-TEVA-591413USA

PATIENT
  Age: 65 Year
  Sex: Male
  Weight: 88.53 kg

DRUGS (2)
  1. CELECOXIB. [Suspect]
     Active Substance: CELECOXIB
     Indication: SPINAL COLUMN STENOSIS
  2. CELECOXIB. [Suspect]
     Active Substance: CELECOXIB
     Indication: OSTEOARTHRITIS
     Dosage: 400 MILLIGRAM DAILY;
     Dates: start: 2015, end: 2015

REACTIONS (8)
  - Joint swelling [Unknown]
  - Arthralgia [Not Recovered/Not Resolved]
  - Joint swelling [Not Recovered/Not Resolved]
  - Spinal column stenosis [Recovering/Resolving]
  - Muscle spasms [Unknown]
  - Drug ineffective [Unknown]
  - Product substitution issue [Unknown]
  - Peripheral swelling [Not Recovered/Not Resolved]

NARRATIVE: CASE EVENT DATE: 2015
